FAERS Safety Report 12694934 (Version 1)
Quarter: 2016Q3

REPORT INFORMATION
  Report Type: Report from Study
  Country: NL (occurrence: NL)
  Receive Date: 20160829
  Receipt Date: 20160829
  Transmission Date: 20161109
  Serious: Yes (Other)
  Sender: FDA-Public Use
  Company Number: NL-BAYER-2016-161212

PATIENT
  Sex: Female

DRUGS (1)
  1. BETAFERON [Suspect]
     Active Substance: INTERFERON BETA-1B
     Indication: RELAPSING-REMITTING MULTIPLE SCLEROSIS
     Dosage: 250 ?G, UNK
     Dates: start: 2006, end: 20160803

REACTIONS (7)
  - Drug ineffective [None]
  - Visual impairment [Recovered/Resolved with Sequelae]
  - Fatigue [Recovered/Resolved with Sequelae]
  - Hypoaesthesia [Recovered/Resolved with Sequelae]
  - Limb discomfort [Recovered/Resolved with Sequelae]
  - Paraesthesia [Recovered/Resolved with Sequelae]
  - Multiple sclerosis [None]

NARRATIVE: CASE EVENT DATE: 2015
